APPROVED DRUG PRODUCT: LAMISIL
Active Ingredient: TERBINAFINE HYDROCHLORIDE
Strength: 1% **Federal Register determination that product was not discontinued or withdrawn for safety or effectiveness reasons**
Dosage Form/Route: CREAM;TOPICAL
Application: N020192 | Product #001
Applicant: NOVARTIS PHARMACEUTICALS CORP
Approved: Dec 30, 1992 | RLD: No | RS: No | Type: DISCN